FAERS Safety Report 7587700-X (Version None)
Quarter: 2011Q3

REPORT INFORMATION
  Report Type: 
  Country: None (occurrence: None)
  Receive Date: 20110704
  Receipt Date: 20110624
  Transmission Date: 20111222
  Serious: Yes (Death, Other)
  Sender: FDA-Public Use
  Company Number: JP-BRISTOL-MYERS SQUIBB COMPANY-15860901

PATIENT
  Age: 7 Decade
  Sex: Male

DRUGS (3)
  1. CISPLATIN [Suspect]
     Indication: NON-SMALL CELL LUNG CANCER
     Dosage: 50 MCG/ML DISTILLED WATER FOR 15 MIN DURING OPERATION. POSTOP 10MG INF THROUGH DRAIN EVERY 2D/2WKS.
  2. PARAPLATIN [Suspect]
     Indication: NON-SMALL CELL LUNG CANCER
     Dosage: 1 DF= 25-50 MG, POSTOPERATIVE THERAPY, (INFUSED THROUGH A DRAIN EVERY 2 DAYS FOR 2 WEEKS).
  3. PICIBANIL [Suspect]
     Indication: NON-SMALL CELL LUNG CANCER
     Dosage: 1 DF= 3-5KE, POSTOPERATIVE THERAPY, (INFUSED THROUGH A DRAIN EVERY 2 DAYS FOR 2 WEEKS).

REACTIONS (3)
  - PNEUMONIA ASPIRATION [None]
  - CHEST PAIN [None]
  - CEREBRAL INFARCTION [None]
